FAERS Safety Report 4514361-6 (Version None)
Quarter: 2004Q4

REPORT INFORMATION
  Report Type: 
  Country: None (occurrence: None)
  Receive Date: 20041124
  Receipt Date: 20041108
  Transmission Date: 20050328
  Serious: Yes (Other)
  Sender: FDA-Public Use
  Company Number: DE_041114690

PATIENT
  Age: 37 Year
  Sex: Male

DRUGS (2)
  1. FLUOXETINE [Suspect]
     Dates: start: 20040101, end: 20041101
  2. STANGLYL (TRIMIPRAMINE MALEATE) [Concomitant]

REACTIONS (3)
  - CORNEAL INFILTRATES [None]
  - CORNEAL ULCER [None]
  - VISUAL ACUITY REDUCED [None]
